FAERS Safety Report 21341485 (Version 1)
Quarter: 2022Q3

REPORT INFORMATION
  Report Type: Spontaneous
  Country: US (occurrence: None)
  Receive Date: 20220916
  Receipt Date: 20220916
  Transmission Date: 20221027
  Serious: No
  Sender: FDA-Public Use
  Company Number: 2022A317563

PATIENT
  Sex: Female
  Weight: 60.8 kg

DRUGS (1)
  1. BYDUREON BCISE [Suspect]
     Active Substance: EXENATIDE
     Indication: Type 2 diabetes mellitus
     Route: 058

REACTIONS (9)
  - Injection site mass [Unknown]
  - Injection site pain [Unknown]
  - Injection site erythema [Unknown]
  - Injection site inflammation [Unknown]
  - Impaired healing [Unknown]
  - Injection site pruritus [Unknown]
  - Injection site discolouration [Unknown]
  - Wrong technique in device usage process [Unknown]
  - Device difficult to use [Unknown]
